FAERS Safety Report 25633201 (Version 2)
Quarter: 2025Q3

REPORT INFORMATION
  Report Type: Spontaneous
  Country: US (occurrence: US)
  Receive Date: 20250801
  Receipt Date: 20250818
  Transmission Date: 20251021
  Serious: Yes (Hospitalization, Other)
  Sender: NOVO NORDISK
  Company Number: US-NOVOPROD-1488609

PATIENT
  Sex: Female

DRUGS (1)
  1. SEMAGLUTIDE [Suspect]
     Active Substance: SEMAGLUTIDE
     Indication: Product used for unknown indication
     Dosage: 40 IU, QD
     Dates: start: 202502

REACTIONS (4)
  - Hip arthroplasty [Unknown]
  - Wound [Unknown]
  - Adverse drug reaction [Unknown]
  - Counterfeit product administered [Unknown]
